FAERS Safety Report 4869630-7 (Version None)
Quarter: 2005Q4

REPORT INFORMATION
  Report Type: 
  Country: None (occurrence: None)
  Receive Date: 20051227
  Receipt Date: 20051220
  Transmission Date: 20060501
  Serious: Yes (Death, Hospitalization)
  Sender: FDA-Public Use
  Company Number: HQWYE662030OCT03

PATIENT
  Age: 34 Year
  Sex: Male

DRUGS (3)
  1. EFFEXOR [Suspect]
     Dosage: OVERDOSE AMOUNT UNKNOWN
     Route: 048
  2. CHLORPROMAZINE [Suspect]
     Dosage: OVERDOSE AMOUNT UNKNOWN
     Route: 048
  3. RISPERIDONE [Suspect]
     Dosage: OVERDOSE AMOUNT UNKOWN
     Route: 048

REACTIONS (25)
  - BLOOD PRESSURE DECREASED [None]
  - BRONCHOPNEUMONIA [None]
  - CARDIAC ARREST [None]
  - CARDIAC FAILURE [None]
  - CHROMATURIA [None]
  - COMPLETED SUICIDE [None]
  - DEPRESSED LEVEL OF CONSCIOUSNESS [None]
  - ELECTROMECHANICAL DISSOCIATION [None]
  - GLASGOW COMA SCALE ABNORMAL [None]
  - GRAND MAL CONVULSION [None]
  - HEART RATE DECREASED [None]
  - HEPATIC CONGESTION [None]
  - HEPATIC NECROSIS [None]
  - HEPATIC STEATOSIS [None]
  - HEPATITIS ACUTE [None]
  - INTENTIONAL OVERDOSE [None]
  - MULTI-ORGAN FAILURE [None]
  - NERVOUSNESS [None]
  - PULMONARY ALVEOLAR HAEMORRHAGE [None]
  - PULMONARY CONGESTION [None]
  - RENAL FAILURE ACUTE [None]
  - RHABDOMYOLYSIS [None]
  - RIB FRACTURE [None]
  - SEROTONIN SYNDROME [None]
  - SINUS TACHYCARDIA [None]
